FAERS Safety Report 6511202-2 (Version None)
Quarter: 2009Q4

REPORT INFORMATION
  Report Type: 
  Country: None (occurrence: None)
  Receive Date: 20091222
  Receipt Date: 20090226
  Transmission Date: 20100525
  Serious: No
  Sender: FDA-Public Use
  Company Number: US-ASTRAZENECA-2009UW05317

PATIENT
  Age: 72 Year
  Sex: Female
  Weight: 51.7 kg

DRUGS (5)
  1. CRESTOR [Suspect]
     Route: 048
  2. PLAVIX [Concomitant]
     Indication: CARDIAC DISORDER
  3. LISINOPRIL [Concomitant]
     Indication: HYPERTENSION
  4. METOPROLOL TARTRATE [Concomitant]
     Indication: HYPERTENSION
  5. BABY ASPIRIN [Concomitant]
     Indication: CARDIAC DISORDER

REACTIONS (1)
  - PAIN IN EXTREMITY [None]
